FAERS Safety Report 10142916 (Version 3)
Quarter: 2014Q2

REPORT INFORMATION
  Report Type: Report from Study
  Country: NL (occurrence: NL)
  Receive Date: 20140430
  Receipt Date: 20140530
  Transmission Date: 20141212
  Serious: Yes (Hospitalization, Other)
  Sender: FDA-Public Use
  Company Number: NL-JNJFOC-20140411817

PATIENT
  Age: 82 Year
  Sex: Male

DRUGS (11)
  1. ABIRATERONE ACETATE [Suspect]
     Indication: PROSTATE CANCER METASTATIC
     Route: 048
     Dates: start: 20130924
  2. ENALAPRIL [Concomitant]
     Route: 065
  3. PREDNISONE [Concomitant]
     Route: 065
  4. CHLOORTALIDON [Concomitant]
     Route: 065
  5. ALFUZOSINE [Concomitant]
     Route: 065
  6. LUCRIN [Concomitant]
     Route: 058
  7. XGEVA [Concomitant]
     Route: 058
  8. CALCIUM W/ VITAMIN D [Concomitant]
     Route: 065
  9. OMEPRAZOLE [Concomitant]
     Route: 065
  10. AMLODIPINE [Concomitant]
     Route: 065
  11. DENOSUMAB [Concomitant]
     Indication: PROSTATE CANCER METASTATIC
     Route: 065

REACTIONS (10)
  - Choking [Recovered/Resolved]
  - Syncope [Recovered/Resolved]
  - Aspiration [Recovered/Resolved]
  - Fall [Unknown]
  - Pleural effusion [Unknown]
  - Haemoglobin decreased [Unknown]
  - Back pain [Unknown]
  - Musculoskeletal pain [Unknown]
  - Blood pressure systolic increased [Unknown]
  - Rhinorrhoea [Unknown]
